FAERS Safety Report 24575833 (Version 1)
Quarter: 2024Q4

REPORT INFORMATION
  Report Type: Spontaneous
  Country: US (occurrence: None)
  Receive Date: 20241101
  Receipt Date: 20241101
  Transmission Date: 20250114
  Serious: Yes (Hospitalization)
  Sender: Public
  Company Number: None

PATIENT
  Age: 62 Year
  Sex: Female
  Weight: 56.15 kg

DRUGS (1)
  1. REVLIMID [Suspect]
     Active Substance: LENALIDOMIDE
     Indication: Plasma cell myeloma
     Dosage: FREQUENCY : DAILY;?
     Route: 048
     Dates: start: 20241003

REACTIONS (5)
  - Blood calcium decreased [None]
  - Blood magnesium decreased [None]
  - Blood phosphorus decreased [None]
  - Full blood count abnormal [None]
  - Blood potassium increased [None]

NARRATIVE: CASE EVENT DATE: 20241014
